FAERS Safety Report 11645763 (Version 3)
Quarter: 2015Q4

REPORT INFORMATION
  Report Type: Spontaneous
  Country: US (occurrence: None)
  Receive Date: 20151020
  Receipt Date: 20151103
  Transmission Date: 20160304
  Serious: Yes (Other)
  Sender: FDA-Public Use
  Company Number: US-MDT-ADR-2015-01986

PATIENT
  Age: 52 Year
  Sex: Male

DRUGS (2)
  1. BACLOFEN INTRATHECAL 3500 ^MCG^ [Suspect]
     Active Substance: BACLOFEN
     Indication: MUSCLE SPASTICITY
     Dosage: 481 MCG/DAY
  2. DILAUDID [Suspect]
     Active Substance: HYDROMORPHONE HYDROCHLORIDE
     Dosage: 3.8 MG/DAY

REACTIONS (12)
  - Infection [None]
  - Intervertebral disc degeneration [None]
  - Intervertebral discitis [None]
  - Facet joint syndrome [None]
  - Intervertebral disc disorder [None]
  - Computerised tomogram abnormal [None]
  - Osteomyelitis [None]
  - Proctalgia [None]
  - Vertebral foraminal stenosis [None]
  - Arachnoiditis [None]
  - Spinal osteoarthritis [None]
  - Intervertebral disc protrusion [None]
